FAERS Safety Report 5256851-7 (Version None)
Quarter: 2007Q1

REPORT INFORMATION
  Report Type: 
  Country: None (occurrence: None)
  Receive Date: 20070306
  Receipt Date: 20070221
  Transmission Date: 20070707
  Serious: Yes (Hospitalization)
  Sender: FDA-Public Use
  Company Number: NL-ELI_LILLY_AND_COMPANY-NL200702004277

PATIENT
  Age: 74 Year
  Sex: Female
  Weight: 70 kg

DRUGS (12)
  1. CYMBALTA [Suspect]
     Indication: DEPRESSION
     Dosage: 30 MG, DAILY (1/D)
     Dates: start: 20061123
  2. TRAMADOL HCL [Concomitant]
     Dosage: 100 MG, DAILY (1/D)
  3. SPIRONOLACTONUM [Concomitant]
     Dosage: 25 MG, DAILY (1/D)
  4. LIPITOR [Concomitant]
     Dosage: 10 MG, DAILY (1/D)
  5. IMPORTAL [Concomitant]
     Dosage: UNK , DAILY (1/D)
  6. OCULOTECT /00042801/ [Concomitant]
     Dosage: UNK UNK, 4/D
  7. DOMPERIDONE [Concomitant]
     Dosage: 10 MG, 4/D
  8. SUCRALFATE [Concomitant]
     Dosage: UNK UNK, DAILY (1/D)
  9. PANTOZOL [Concomitant]
     Dosage: 40 MG, 3/D
  10. CALCICHEW [Concomitant]
     Dosage: 500 MG, DAILY (1/D)
  11. CATAFLAM [Concomitant]
     Dosage: 50 MG, DAILY (1/D)
  12. PENTOSANPOLYSULFAT SP 54 [Concomitant]
     Dosage: 100 MG, 3/D

REACTIONS (1)
  - RECTAL HAEMORRHAGE [None]
